FAERS Safety Report 9112448 (Version 3)
Quarter: 2013Q1

REPORT INFORMATION
  Report Type: Spontaneous
  Country: US (occurrence: US)
  Receive Date: 20130211
  Receipt Date: 20130307
  Transmission Date: 20140127
  Serious: Yes (Other)
  Sender: FDA-Public Use
  Company Number: US-JNJFOC-20130202822

PATIENT
  Sex: Female
  Weight: 45.36 kg

DRUGS (6)
  1. TRAMADOL [Suspect]
     Indication: NEURALGIA
     Dosage: 2 /DAY
     Route: 048
  2. TYLENOL [Suspect]
     Route: 065
  3. TYLENOL [Suspect]
     Indication: NEURALGIA
     Dosage: 500 MG TO 600MG 2 TIMES A DAY OCCASIONALLY
     Route: 065
  4. GABAPENTIN [Suspect]
     Indication: NEURALGIA
     Route: 065
  5. GABAPENTIN [Suspect]
     Indication: NEURALGIA
     Route: 065
  6. ADVIL [Suspect]
     Indication: NEURALGIA
     Route: 048

REACTIONS (4)
  - Surgery [Unknown]
  - Burning sensation [Unknown]
  - Neuralgia [Unknown]
  - Drug ineffective [Unknown]
